FAERS Safety Report 5431189-3 (Version None)
Quarter: 2007Q3

REPORT INFORMATION
  Report Type: 
  Country: None (occurrence: None)
  Receive Date: 20070830
  Receipt Date: 20070321
  Transmission Date: 20080115
  Serious: No
  Sender: FDA-Public Use
  Company Number: A0644114A

PATIENT
  Age: 55 Year
  Sex: Female

DRUGS (5)
  1. WELLBUTRIN XL [Suspect]
     Indication: DEPRESSION
     Dosage: 300MG VARIABLE DOSE
     Route: 048
  2. LIPITOR [Concomitant]
  3. BONIVA [Concomitant]
  4. ASPIRIN [Concomitant]
  5. METROGEL [Concomitant]

REACTIONS (2)
  - INSOMNIA [None]
  - WEIGHT DECREASED [None]
